FAERS Safety Report 7720113-6 (Version None)
Quarter: 2011Q3

REPORT INFORMATION
  Report Type: 
  Country: None (occurrence: None)
  Receive Date: 20110824
  Receipt Date: 20110809
  Transmission Date: 20111222
  Serious: Yes (Death, Hospitalization, Other)
  Sender: FDA-Public Use
  Company Number: 2011MA011572

PATIENT
  Age: 49 Year
  Sex: Female

DRUGS (3)
  1. EPINEPHRINE [Suspect]
     Indication: ANAPHYLACTIC REACTION
     Dosage: 300 UG;X1;IM
     Route: 030
  2. PREDNISONE [Suspect]
     Indication: ANAPHYLACTIC REACTION
     Dosage: 50 MG; X1; PO
     Route: 048
  3. PROMETHAZINE [Suspect]
     Indication: ANAPHYLACTIC REACTION
     Dosage: 50 MG; X1; IM
     Route: 030

REACTIONS (15)
  - SEPSIS [None]
  - RHINORRHOEA [None]
  - BLOOD PRESSURE SYSTOLIC INCREASED [None]
  - RESPIRATORY RATE INCREASED [None]
  - PRURITUS [None]
  - WHEEZING [None]
  - CLOSTRIDIUM TEST POSITIVE [None]
  - GAS GANGRENE [None]
  - TREATMENT NONCOMPLIANCE [None]
  - THROAT IRRITATION [None]
  - PAIN IN EXTREMITY [None]
  - HEART RATE INCREASED [None]
  - PYREXIA [None]
  - LEG AMPUTATION [None]
  - SELF-MEDICATION [None]
